FAERS Safety Report 4845653-9 (Version None)
Quarter: 2005Q4

REPORT INFORMATION
  Report Type: 
  Country: None (occurrence: None)
  Receive Date: 20051206
  Receipt Date: 20051107
  Transmission Date: 20060501
  Serious: Yes (Disabling)
  Sender: FDA-Public Use
  Company Number: JP-SP-2005-02372

PATIENT
  Sex: Male

DRUGS (1)
  1. BCG  THERAPEUTICS [Suspect]
     Indication: TRANSITIONAL CELL CARCINOMA
     Route: 065

REACTIONS (2)
  - LYMPHADENOPATHY MEDIASTINAL [None]
  - RENAL TUBERCULOSIS [None]
